FAERS Safety Report 14638208 (Version 2)
Quarter: 2018Q2

REPORT INFORMATION
  Report Type: Spontaneous
  Country: US (occurrence: US)
  Receive Date: 20180314
  Receipt Date: 20180531
  Transmission Date: 20180711
  Serious: Yes (Other)
  Sender: FDA-Public Use
  Company Number: US-NOVOPROD-589212

PATIENT
  Sex: Female

DRUGS (1)
  1. LEVEMIR [Suspect]
     Active Substance: INSULIN DETEMIR
     Indication: PRODUCT USED FOR UNKNOWN INDICATION
     Dosage: 45 U, BID
     Route: 058

REACTIONS (7)
  - Erythema [Unknown]
  - Rash [Unknown]
  - Systemic lupus erythematosus [Unknown]
  - Injection site mass [Unknown]
  - Swelling [Unknown]
  - Multiple sclerosis [Unknown]
  - Wheezing [Unknown]

NARRATIVE: CASE EVENT DATE: 20180303
